FAERS Safety Report 6604998-2 (Version None)
Quarter: 2010Q1

REPORT INFORMATION
  Report Type: 
  Country: None (occurrence: None)
  Receive Date: 20100226
  Receipt Date: 20100217
  Transmission Date: 20100710
  Serious: Yes (Other)
  Sender: FDA-Public Use
  Company Number: JP-BRISTOL-MYERS SQUIBB COMPANY-14914683

PATIENT
  Age: 6 Decade
  Sex: Female

DRUGS (1)
  1. VEPESID [Suspect]
     Indication: CERVIX CARCINOMA
     Route: 048

REACTIONS (1)
  - RENAL TUBULAR NECROSIS [None]
